FAERS Safety Report 7128628-9 (Version None)
Quarter: 2010Q4

REPORT INFORMATION
  Report Type: 
  Country: None (occurrence: None)
  Receive Date: 20101130
  Receipt Date: 20101122
  Transmission Date: 20110411
  Serious: Yes (Other)
  Sender: FDA-Public Use
  Company Number: PHHY2010JP80183

PATIENT
  Sex: Male

DRUGS (3)
  1. SYMMETREL [Suspect]
     Indication: PARKINSON'S DISEASE
     Dosage: 150 MG DAILY
     Route: 048
  2. SYMMETREL [Suspect]
     Dosage: 300 MG DAILY
     Route: 048
  3. COMTAN [Suspect]
     Indication: ON AND OFF PHENOMENON
     Route: 048

REACTIONS (3)
  - DELIRIUM [None]
  - DYSKINESIA [None]
  - MYOCLONUS [None]
